FAERS Safety Report 25250863 (Version 1)
Quarter: 2025Q2

REPORT INFORMATION
  Report Type: Spontaneous
  Country: NL (occurrence: NL)
  Receive Date: 20250429
  Receipt Date: 20250429
  Transmission Date: 20250716
  Serious: Yes (Hospitalization)
  Sender: CSL BEHRING
  Company Number: None

PATIENT
  Age: 63 Year
  Sex: Male
  Weight: 93 kg

DRUGS (1)
  1. PRIVIGEN [Suspect]
     Active Substance: HUMAN IMMUNOGLOBULIN G
     Indication: Encephalitis autoimmune
     Dosage: 40 G, QD
     Route: 065
     Dates: start: 20250403

REACTIONS (2)
  - Renal infarct [Unknown]
  - Off label use [Unknown]
